FAERS Safety Report 9502487 (Version 1)
Quarter: 2013Q3

REPORT INFORMATION
  Report Type: Spontaneous
  Country: PR (occurrence: PR)
  Receive Date: 20130906
  Receipt Date: 20130906
  Transmission Date: 20140515
  Serious: Yes (Hospitalization, Disabling, Other)
  Sender: FDA-Public Use
  Company Number: PR-SHIRE-ALL1-2013-05987

PATIENT
  Age: 20 Year
  Sex: Male

DRUGS (7)
  1. ADDERALL XR [Suspect]
     Indication: ATTENTION DEFICIT/HYPERACTIVITY DISORDER
     Dosage: 60 MG, 1X/DAY:QD
     Route: 048
  2. ADDERALL XR [Suspect]
     Indication: MAJOR DEPRESSION
     Dosage: UNK, UNKNOWN
     Route: 048
     Dates: start: 200709
  3. ADDERALL XR [Suspect]
     Indication: PRODUCT USED FOR UNKNOWN INDICATION
  4. WELLBUTRIN [Concomitant]
     Indication: ATTENTION DEFICIT/HYPERACTIVITY DISORDER
     Dosage: UNK, UNKNOWN
     Route: 065
  5. WELLBUTRIN [Concomitant]
     Indication: PRODUCT USED FOR UNKNOWN INDICATION
  6. RISPERDAL [Concomitant]
     Indication: ATTENTION DEFICIT/HYPERACTIVITY DISORDER
     Dosage: UNK, UNKNOWN
     Route: 065
  7. RISPERDAL [Concomitant]
     Indication: PRODUCT USED FOR UNKNOWN INDICATION

REACTIONS (19)
  - Brain injury [Not Recovered/Not Resolved]
  - Suicidal ideation [Unknown]
  - Paranoia [Not Recovered/Not Resolved]
  - Drug dependence [Unknown]
  - Drug abuse [Unknown]
  - Social phobia [Not Recovered/Not Resolved]
  - Decreased interest [Not Recovered/Not Resolved]
  - Drug withdrawal syndrome [Not Recovered/Not Resolved]
  - Social avoidant behaviour [Not Recovered/Not Resolved]
  - Confusional state [Not Recovered/Not Resolved]
  - Depression [Unknown]
  - Aggression [Not Recovered/Not Resolved]
  - Hallucination, visual [Unknown]
  - Hallucination, auditory [Unknown]
  - Anxiety [Not Recovered/Not Resolved]
  - Disturbance in attention [Not Recovered/Not Resolved]
  - Emotional distress [Not Recovered/Not Resolved]
  - Insomnia [Not Recovered/Not Resolved]
  - Prescribed overdose [Recovered/Resolved]
